APPROVED DRUG PRODUCT: HYDROCORTISONE
Active Ingredient: HYDROCORTISONE
Strength: 2.5%
Dosage Form/Route: LOTION;TOPICAL
Application: A040417 | Product #001
Applicant: CHARTWELL MOLECULAR HOLDINGS LLC
Approved: Jul 30, 2003 | RLD: No | RS: No | Type: DISCN